APPROVED DRUG PRODUCT: CEFAZOLIN SODIUM
Active Ingredient: CEFAZOLIN SODIUM
Strength: EQ 10GM BASE/VIAL
Dosage Form/Route: INJECTABLE;INJECTION
Application: A065143 | Product #001 | TE Code: AP
Applicant: HIKMA FARMACEUTICA PORTUGAL LDA
Approved: Oct 18, 2004 | RLD: No | RS: No | Type: RX